FAERS Safety Report 5410394-6 (Version None)
Quarter: 2007Q3

REPORT INFORMATION
  Report Type: 
  Country: None (occurrence: None)
  Receive Date: 20070713
  Receipt Date: 20070526
  Transmission Date: 20080115
  Serious: No
  Sender: FDA-Public Use
  Company Number: 2007SP001993

PATIENT
  Age: 84 Year
  Sex: Male
  Weight: 72.5755 kg

DRUGS (15)
  1. LUNESTA [Suspect]
     Indication: INSOMNIA
     Dosage: 3 MG;HS;ORAL ; 6 MG;PRN;ORAL ; 3 MG;PRN;ORAL
     Route: 048
     Dates: start: 20070101
  2. LUNESTA [Suspect]
     Indication: INSOMNIA
     Dosage: 3 MG;HS;ORAL ; 6 MG;PRN;ORAL ; 3 MG;PRN;ORAL
     Route: 048
     Dates: start: 20070101
  3. LUNESTA [Suspect]
     Indication: INSOMNIA
     Dosage: 3 MG;HS;ORAL ; 6 MG;PRN;ORAL ; 3 MG;PRN;ORAL
     Route: 048
     Dates: start: 20070501
  4. MECLIZINE [Concomitant]
  5. VITAMIN E [Concomitant]
  6. VITAMIN CAP [Concomitant]
  7. METOPROLOL SUCCINATE [Concomitant]
  8. LISINOPRIL [Concomitant]
  9. KEPPRA [Concomitant]
  10. NEXIUM [Concomitant]
  11. REQUIP [Concomitant]
  12. ATORVASTATIN CALCIUM [Concomitant]
  13. MELOXICAM [Concomitant]
  14. PLAVIX [Concomitant]
  15. LORAZEPAM [Concomitant]

REACTIONS (2)
  - DRUG INEFFECTIVE [None]
  - MIDDLE INSOMNIA [None]
